FAERS Safety Report 9710975 (Version 2)
Quarter: 2013Q4

REPORT INFORMATION
  Report Type: Spontaneous
  Country: US (occurrence: US)
  Receive Date: 20131126
  Receipt Date: 20131126
  Transmission Date: 20140711
  Serious: No
  Sender: FDA-Public Use
  Company Number: US-BRISTOL-MYERS SQUIBB COMPANY-19087956

PATIENT
  Age: 49 Year
  Sex: Female

DRUGS (2)
  1. BYETTA PEN DISPOSABLE [Suspect]
  2. GLUCOPHAGE [Suspect]
     Indication: TYPE 2 DIABETES MELLITUS

REACTIONS (3)
  - Hyperglycaemia [Unknown]
  - Underdose [Unknown]
  - Product quality issue [Unknown]
